FAERS Safety Report 8041921-0 (Version None)
Quarter: 2011Q4

REPORT INFORMATION
  Report Type: 
  Country: None (occurrence: None)
  Receive Date: 20111202
  Receipt Date: 20110831
  Transmission Date: 20120403
  Serious: No
  Sender: FDA-Public Use
  Company Number: PHEH2011US03081

PATIENT
  Age: 38 Year
  Sex: Male

DRUGS (5)
  1. FANAPT [Suspect]
     Dosage: 6 MG, BID
  2. HYDROXYZINE HCL [Concomitant]
  3. CLONAZEPAM [Concomitant]
  4. CITALOPRAM HYDROBROMIDE [Concomitant]
  5. MULTIVITAMIN [Concomitant]

REACTIONS (3)
  - DRUG INEFFECTIVE [None]
  - GLOSSODYNIA [None]
  - TONGUE DISORDER [None]
